FAERS Safety Report 8773597 (Version 2)
Quarter: 2012Q4

REPORT INFORMATION
  Report Type: 
  Country: US (occurrence: US)
  Receive Date: 20120907
  Receipt Date: 20120920
  Transmission Date: 20130627
  Serious: Yes (Other)
  Sender: FDA-Public Use
  Company Number: PHEH2012US017343

PATIENT
  Sex: Female

DRUGS (6)
  1. RECLAST [Suspect]
     Indication: OSTEOPOROSIS
     Dosage: UNK UKN, UNK
     Route: 042
     Dates: start: 20120509
  2. ATIVAN [Concomitant]
     Dosage: 0.05 mg, UNK
     Route: 048
  3. GEMFIBROZIL [Concomitant]
     Dosage: 600 mg, UNK
     Route: 048
  4. ALENDRONIC ACID [Concomitant]
     Dosage: UNK mg, 4-25 mg
     Route: 048
  5. PERPHENAN [Concomitant]
     Dosage: 70 mg, UNK
     Route: 048
  6. PRIMIDONE [Concomitant]
     Dosage: 50 mg, UNK
     Route: 048

REACTIONS (1)
  - Tooth disorder [Unknown]
